FAERS Safety Report 5693776-7 (Version None)
Quarter: 2008Q2

REPORT INFORMATION
  Report Type: 
  Country: None (occurrence: None)
  Receive Date: 20080403
  Receipt Date: 20080331
  Transmission Date: 20081010
  Serious: Yes (Death, Life-Threatening)
  Sender: FDA-Public Use
  Company Number: PHHY2008JP02813

PATIENT
  Age: 37 Year
  Sex: Female

DRUGS (3)
  1. LUDIOMIL [Suspect]
     Indication: DEPRESSION
     Dosage: 100 DF
     Route: 048
     Dates: start: 20071103, end: 20071103
  2. PAXIL [Suspect]
     Indication: DEPRESSION
     Dosage: 100 DF,
     Route: 048
     Dates: start: 20071103, end: 20071103
  3. ALPRAZOLAM [Concomitant]

REACTIONS (4)
  - ANTIDEPRESSANT DRUG LEVEL INCREASED [None]
  - CARDIO-RESPIRATORY ARREST [None]
  - DRUG SCREEN POSITIVE [None]
  - OVERDOSE [None]
